FAERS Safety Report 6739854-2 (Version None)
Quarter: 2010Q2

REPORT INFORMATION
  Report Type: 
  Country: None (occurrence: None)
  Receive Date: 20100525
  Receipt Date: 20100521
  Transmission Date: 20101027
  Serious: Yes (Death)
  Sender: FDA-Public Use
  Company Number: PHHY2010GB04234

PATIENT
  Sex: Female
  Weight: 95 kg

DRUGS (4)
  1. CLOZARIL [Suspect]
     Indication: SCHIZOPHRENIA
     Dosage: 450 MG/DAY
     Dates: start: 20060724
  2. CITALOPRAM [Concomitant]
     Indication: DEPRESSION
     Dosage: 50 MG DAILY
     Route: 048
     Dates: start: 20050520
  3. PREGABALIN [Concomitant]
     Indication: ANXIETY
     Dosage: 150 MG DAILY
     Route: 048
     Dates: start: 20080901
  4. PREGABALIN [Concomitant]
     Indication: POOR QUALITY SLEEP

REACTIONS (2)
  - EMPHYSEMA [None]
  - LUNG ABSCESS [None]
